FAERS Safety Report 18344407 (Version 1)
Quarter: 2020Q4

REPORT INFORMATION
  Report Type: Spontaneous
  Country: US (occurrence: US)
  Receive Date: 20201005
  Receipt Date: 20201005
  Transmission Date: 20210114
  Serious: Yes (Other)
  Sender: FDA-Public Use
  Company Number: None

PATIENT
  Age: 23 Year
  Sex: Female

DRUGS (9)
  1. HYDROCO/APAP [Concomitant]
     Active Substance: ACETAMINOPHEN\HYDROCODONE
  2. PREDNISONE. [Concomitant]
     Active Substance: PREDNISONE
  3. ONDANSETRON [Concomitant]
     Active Substance: ONDANSETRON
  4. MONTELUKAST [Concomitant]
     Active Substance: MONTELUKAST SODIUM
  5. FAMOTIDINE. [Concomitant]
     Active Substance: FAMOTIDINE
  6. HUMIRA [Suspect]
     Active Substance: ADALIMUMAB
     Indication: PSORIASIS
     Dosage: ?          OTHER FREQUENCY:EVERY 2 WEEKS;?
     Route: 058
     Dates: start: 20190801
  7. METHYLPRED [Concomitant]
     Active Substance: METHYLPREDNISOLONE
  8. LIDOCAINE. [Concomitant]
     Active Substance: LIDOCAINE
  9. AZELASTINE. [Concomitant]
     Active Substance: AZELASTINE HYDROCHLORIDE

REACTIONS (1)
  - Therapy interrupted [None]
